FAERS Safety Report 6371540-3 (Version None)
Quarter: 2009Q3

REPORT INFORMATION
  Report Type: 
  Country: None (occurrence: None)
  Receive Date: 20090923
  Receipt Date: 20080418
  Transmission Date: 20100115
  Serious: Yes (Other)
  Sender: FDA-Public Use
  Company Number: US-ASTRAZENECA-2007UW16434

PATIENT
  Age: 43 Year
  Weight: 137 kg

DRUGS (33)
  1. SEROQUEL [Suspect]
     Indication: SCHIZOPHRENIA
     Route: 048
     Dates: start: 20030101, end: 20060301
  2. SEROQUEL [Suspect]
     Dosage: 100-200 MG
     Route: 048
     Dates: start: 20040622
  3. RISPERDAL [Concomitant]
     Route: 065
  4. ZYPREXA [Concomitant]
     Route: 065
  5. PROMETHAZINE [Concomitant]
     Route: 065
  6. ERYTHROMYCIN [Concomitant]
     Route: 065
  7. HYDROCODONE [Concomitant]
     Dosage: 5/500 MG
     Route: 065
  8. AMOXICILLIN-CLAV [Concomitant]
     Dosage: 875/125 MG 1 TABLET TWICE DAILY
     Route: 065
  9. SINGULAIR [Concomitant]
     Indication: ASTHMA
     Route: 048
  10. ALBUTEROL [Concomitant]
     Dosage: 90 MCG TWO PUFFS FOUR TIMES DAILY
     Route: 065
  11. ADVAIR HFA [Concomitant]
     Dosage: 250/50 MCG ONE PUFF TWICE DAILY
     Route: 065
  12. APRODINE [Concomitant]
     Dosage: 80-2.5 MG TWICE DAILY
     Route: 048
  13. PATANOL [Concomitant]
     Route: 065
  14. NAPROXEN [Concomitant]
     Route: 065
  15. ZITHROMAX [Concomitant]
     Route: 065
  16. CARISOPRODOL [Concomitant]
     Route: 048
  17. ALPRAZOLAM [Concomitant]
     Route: 065
  18. AMARYL [Concomitant]
     Route: 065
  19. FUROSEMIDE [Concomitant]
     Route: 065
  20. CLOTRIMAZOLE [Concomitant]
     Route: 065
  21. DIAZEPAM [Concomitant]
     Route: 065
  22. FORTAMET [Concomitant]
     Route: 065
  23. LORATADINE [Concomitant]
     Route: 065
  24. FLONASE [Concomitant]
     Route: 045
  25. COMBIVENT [Concomitant]
     Route: 065
  26. ACTOS [Concomitant]
     Route: 065
  27. CEPHALEXIN [Concomitant]
     Dosage: 250-500 MG FOUR TIMES DAILY
     Route: 048
  28. IBUPROFEN [Concomitant]
     Route: 065
  29. BACLOFEN [Concomitant]
     Route: 065
  30. XOPENEX [Concomitant]
     Dosage: 0.63 MG/3 ML SOLUTION 1 VIAL THREE TIMES DAILY VIA NEBULIZER AS NEEDED
     Route: 065
  31. PREDNISOLONE [Concomitant]
     Route: 048
  32. PHENTERMINE HCL [Concomitant]
     Route: 048
  33. AMOXICILLIN [Concomitant]
     Dosage: 500 MG TWICE DAILY, 500 MG THREE TIMES DAILY
     Route: 048

REACTIONS (10)
  - ASTHMA [None]
  - BACK PAIN [None]
  - CHOLECYSTITIS CHRONIC [None]
  - CHOLELITHIASIS [None]
  - DIABETES MELLITUS [None]
  - GASTRIC DISORDER [None]
  - HYPERGLYCAEMIA [None]
  - OEDEMA PERIPHERAL [None]
  - PANCREATITIS [None]
  - TYPE 2 DIABETES MELLITUS [None]
